FAERS Safety Report 7750988-6 (Version None)
Quarter: 2011Q3

REPORT INFORMATION
  Report Type: 
  Country: None (occurrence: None)
  Receive Date: 20110914
  Receipt Date: 20110909
  Transmission Date: 20111222
  Serious: Yes (Hospitalization)
  Sender: FDA-Public Use
  Company Number: US-BAYER-2011-029082

PATIENT
  Age: 29 Year
  Sex: Female

DRUGS (3)
  1. INTERFERON BETA-1B [Suspect]
     Indication: RELAPSING-REMITTING MULTIPLE SCLEROSIS
     Dosage: 2 MIU, QOD
     Route: 058
     Dates: start: 20110401
  2. INTERFERON BETA-1B [Suspect]
     Dosage: 8 MIU, QOD
     Route: 058
  3. IBUPROFEN [Concomitant]
     Indication: PREMEDICATION

REACTIONS (10)
  - INJECTION SITE ERYTHEMA [None]
  - THYROID FUNCTION TEST ABNORMAL [None]
  - BLINDNESS UNILATERAL [None]
  - MOTOR DYSFUNCTION [None]
  - INJECTION SITE PAIN [None]
  - HYPOAESTHESIA [None]
  - THROMBOSIS [None]
  - INJECTION SITE REACTION [None]
  - PAIN [None]
  - VESSEL PUNCTURE SITE SWELLING [None]
